FAERS Safety Report 8865921 (Version 1)
Quarter: 2012Q4

REPORT INFORMATION
  Report Type: Report from Study
  Country: US (occurrence: US)
  Receive Date: 20121025
  Receipt Date: 20121025
  Transmission Date: 20130627
  Serious: No
  Sender: FDA-Public Use
  Company Number: US-ABBOTT-12P-163-0946905-00

PATIENT
  Age: 48 Year
  Sex: Female
  Weight: 89.44 kg

DRUGS (4)
  1. LUPRON DEPOT 3.75 MG [Suspect]
     Indication: ENDOMETRIOSIS
     Dosage: monthly
     Dates: start: 20120515
  2. BENICAR [Concomitant]
     Indication: HYPERTENSION
     Dosage: 20mg daily
     Route: 048
  3. TOPAMAX [Concomitant]
     Indication: MIGRAINE
     Dosage: 5mg daily at bedtime
     Route: 048
  4. VITAMIN B12 [Concomitant]
     Indication: PRODUCT USED FOR UNKNOWN INDICATION
     Dosage: 1 pill daily
     Route: 048

REACTIONS (3)
  - Feeling cold [Not Recovered/Not Resolved]
  - Hot flush [Not Recovered/Not Resolved]
  - Hyperhidrosis [Not Recovered/Not Resolved]
